FAERS Safety Report 6334848-3 (Version None)
Quarter: 2009Q3

REPORT INFORMATION
  Report Type: 
  Country: None (occurrence: None)
  Receive Date: 20090831
  Receipt Date: 20090826
  Transmission Date: 20100115
  Serious: Yes (Hospitalization)
  Sender: FDA-Public Use
  Company Number: PHHY2009JP36668

PATIENT
  Age: 83 Year
  Sex: Female

DRUGS (2)
  1. VOLTAREN [Suspect]
     Dosage: 75MG DAILY
     Route: 048
  2. CALONAL [Suspect]
     Dosage: UNK
     Route: 048
     Dates: start: 20050101

REACTIONS (1)
  - SMALL INTESTINAL STENOSIS [None]
